FAERS Safety Report 5013943-5 (Version None)
Quarter: 2006Q2

REPORT INFORMATION
  Report Type: 
  Country: None (occurrence: None)
  Receive Date: 20060525
  Receipt Date: 20060505
  Transmission Date: 20061013
  Serious: Yes (Death, Other)
  Sender: FDA-Public Use
  Company Number: US_0510122901

PATIENT
  Age: 6 Year
  Sex: Male
  Weight: 26.3 kg

DRUGS (1)
  1. SOMATROPIN (SOMATROPIN) [Suspect]
     Dosage: 0.2 MG/KG WEEKLY (1/W)

REACTIONS (7)
  - ADENOIDAL HYPERTROPHY [None]
  - APNOEIC ATTACK [None]
  - BRONCHOPNEUMONIA [None]
  - CONDITION AGGRAVATED [None]
  - NOCTURNAL DYSPNOEA [None]
  - PYREXIA [None]
  - TONSILLAR HYPERTROPHY [None]
